FAERS Safety Report 21213776 (Version 1)
Quarter: 2022Q3

REPORT INFORMATION
  Report Type: Spontaneous
  Country: IT (occurrence: IT)
  Receive Date: 20220816
  Receipt Date: 20220816
  Transmission Date: 20221026
  Serious: Yes (Hospitalization)
  Sender: FDA-Public Use
  Company Number: None

PATIENT
  Age: 72 Year
  Sex: Male

DRUGS (2)
  1. METOPROLOLO [Concomitant]
     Indication: Arrhythmia
     Route: 048
  2. OLMESARTAN MEDOXOMIL [Suspect]
     Active Substance: OLMESARTAN MEDOXOMIL
     Indication: Hypertension
     Route: 048

REACTIONS (2)
  - Diarrhoea [Recovering/Resolving]
  - Intestinal villi atrophy [Recovering/Resolving]

NARRATIVE: CASE EVENT DATE: 20220301
